FAERS Safety Report 5511237-2 (Version None)
Quarter: 2007Q4

REPORT INFORMATION
  Report Type: 
  Country: None (occurrence: None)
  Receive Date: 20071109
  Receipt Date: 20071026
  Transmission Date: 20080405
  Serious: Yes (Other)
  Sender: FDA-Public Use
  Company Number: BR-ROCHE-529056

PATIENT
  Age: 34 Year
  Sex: Female
  Weight: 55 kg

DRUGS (3)
  1. ROACUTAN [Suspect]
     Route: 048
     Dates: start: 20070401
  2. ROACUTAN [Suspect]
     Route: 048
     Dates: start: 19980101, end: 19980101
  3. GRACIAL [Suspect]
     Indication: CONTRACEPTION
     Route: 065
     Dates: start: 20070301

REACTIONS (1)
  - PULMONARY EMBOLISM [None]
